FAERS Safety Report 7412256-1 (Version None)
Quarter: 2011Q2

REPORT INFORMATION
  Report Type: 
  Country: None (occurrence: None)
  Receive Date: 20110413
  Receipt Date: 20110404
  Transmission Date: 20111010
  Serious: Yes (Hospitalization)
  Sender: FDA-Public Use
  Company Number: FR-ASTRAZENECA-2011SE19667

PATIENT
  Sex: Male

DRUGS (34)
  1. NOXAFIL [Suspect]
     Route: 042
     Dates: start: 20101202, end: 20101206
  2. ZAVEDOS [Suspect]
     Indication: ACUTE MYELOID LEUKAEMIA
     Route: 042
     Dates: start: 20101126, end: 20101130
  3. TAZOCILLINE [Suspect]
     Route: 042
     Dates: start: 20101126, end: 20101201
  4. DECTANCYL [Suspect]
     Route: 048
     Dates: start: 20101126, end: 20101129
  5. NICOPATCH [Concomitant]
  6. VANCOMYCINE [Suspect]
     Route: 042
     Dates: start: 20101202, end: 20101207
  7. EFFEXOR [Concomitant]
  8. SYMBICORT [Suspect]
     Dosage: 2 DF, DAILY
     Route: 055
     Dates: start: 20101202
  9. TIENAM [Suspect]
     Route: 042
     Dates: start: 20101202, end: 20101208
  10. TARGOCID [Suspect]
     Route: 042
     Dates: start: 20101207, end: 20101227
  11. VESANOID [Suspect]
     Route: 048
     Dates: start: 20101126, end: 20101215
  12. CIFLOX [Suspect]
     Route: 042
     Dates: start: 20101202, end: 20101207
  13. VFEND [Suspect]
     Indication: ASPERGILLOSIS
     Route: 042
     Dates: start: 20101206, end: 20101218
  14. MORPHINE [Concomitant]
  15. ZOPHREN [Concomitant]
  16. SULFATE DE COLISTINE [Suspect]
     Route: 048
     Dates: start: 20101126, end: 20101216
  17. ZOVIRAX [Suspect]
     Indication: MOUTH ULCERATION
     Route: 042
     Dates: start: 20101202, end: 20101210
  18. SPIRIVA [Suspect]
     Route: 042
  19. NICOTINEL [Concomitant]
  20. SERESTA [Concomitant]
  21. ATROVENT [Concomitant]
  22. IDARAC [Concomitant]
  23. FASTURTEC [Concomitant]
  24. CLAVENTIN [Suspect]
     Dates: start: 20101207, end: 20101227
  25. GENTAMICIN [Suspect]
     Route: 048
     Dates: start: 20101126, end: 20101216
  26. EMEND [Suspect]
     Route: 048
     Dates: start: 20101126, end: 20101206
  27. IMODIUM [Concomitant]
  28. ATARAX [Concomitant]
  29. CLOTTAFACT [Concomitant]
  30. SOLIAN [Concomitant]
  31. ARACYTINE [Suspect]
     Indication: ACUTE MYELOID LEUKAEMIA
     Route: 042
     Dates: start: 20101126, end: 20101215
  32. BRICANYL [Concomitant]
  33. NICORETTE INHALEUR [Suspect]
     Indication: NICOTINE DEPENDENCE
     Route: 055
     Dates: start: 20101127, end: 20101210
  34. MOPRAL [Concomitant]

REACTIONS (2)
  - NECROTISING ULCERATIVE GINGIVOSTOMATITIS [None]
  - CONDITION AGGRAVATED [None]
